FAERS Safety Report 5678915-6 (Version None)
Quarter: 2008Q1

REPORT INFORMATION
  Report Type: 
  Country: None (occurrence: None)
  Receive Date: 20080325
  Receipt Date: 20080311
  Transmission Date: 20080703
  Serious: Yes (Other)
  Sender: FDA-Public Use
  Company Number: US-BAYER-200811065BCC

PATIENT
  Age: 55 Year
  Sex: Female
  Weight: 61 kg

DRUGS (4)
  1. ASPIRIN [Suspect]
     Indication: ISCHAEMIC HEART DISEASE PROPHYLAXIS
     Dosage: UNIT DOSE: 325 MG
     Route: 048
     Dates: start: 20040101, end: 20040101
  2. ASPIRIN [Suspect]
     Dosage: UNIT DOSE: 325 MG
     Route: 048
     Dates: start: 20040101, end: 20040101
  3. ASPIRIN [Suspect]
     Dosage: UNIT DOSE: 325 MG
     Route: 048
     Dates: start: 20040101
  4. ASPIRIN [Concomitant]
     Dates: start: 20040101

REACTIONS (2)
  - CHEST DISCOMFORT [None]
  - HYPERTENSION [None]
